FAERS Safety Report 9196763 (Version 2)
Quarter: 2013Q2

REPORT INFORMATION
  Report Type: Spontaneous
  Country: US (occurrence: US)
  Receive Date: 20130328
  Receipt Date: 20130603
  Transmission Date: 20140414
  Serious: Yes (Hospitalization, Other)
  Sender: FDA-Public Use
  Company Number: US-009507513-1203USA02821

PATIENT
  Sex: Female
  Weight: 58.5 kg

DRUGS (8)
  1. FOSAMAX [Suspect]
     Indication: OSTEOPENIA
     Dosage: 10 MG, UNK
     Route: 048
     Dates: start: 19951021, end: 20010208
  2. FOSAMAX [Suspect]
     Dosage: 70 MG, UNK
     Route: 048
     Dates: start: 20010208, end: 20050829
  3. CALCIUM (UNSPECIFIED) [Concomitant]
     Dosage: 1870 - 2495 MG, UNK
     Route: 048
  4. VITAMINS (UNSPECIFIED) [Concomitant]
  5. VITAMIN D (UNSPECIFIED) [Concomitant]
     Dosage: 600-1075 QD
     Route: 048
  6. SYNTHROID [Concomitant]
     Dosage: 0.075 -.100 MG, QD
     Route: 048
  7. RECLAST [Concomitant]
     Indication: OSTEOPENIA
     Dosage: 5 MG, UNK
     Route: 041
     Dates: start: 200805, end: 201005
  8. PREMARIN [Concomitant]
     Dosage: 0.625UNK
     Dates: start: 1986

REACTIONS (39)
  - Femur fracture [Unknown]
  - Femur fracture [Unknown]
  - Internal fixation of fracture [Unknown]
  - Cholecystectomy [Unknown]
  - Femur fracture [Unknown]
  - Peptic ulcer [Unknown]
  - Hypertension [Unknown]
  - Hypokalaemia [Unknown]
  - Insomnia [Unknown]
  - Depression [Unknown]
  - Arthritis [Unknown]
  - Herpes zoster [Unknown]
  - Low turnover osteopathy [Unknown]
  - Fall [Unknown]
  - Excoriation [Unknown]
  - Mouth injury [Unknown]
  - Asthma [Unknown]
  - Appendicectomy [Unknown]
  - Ovarian operation [Unknown]
  - Bunion operation [Unknown]
  - Foot fracture [Unknown]
  - Bursitis [Unknown]
  - Hypercalciuria [Unknown]
  - Gastritis erosive [Unknown]
  - Haematochezia [Unknown]
  - Autoimmune thyroiditis [Unknown]
  - Fall [Unknown]
  - Hot flush [Unknown]
  - Urinary tract infection [Unknown]
  - Colitis ulcerative [Unknown]
  - Fatigue [Unknown]
  - Body height decreased [Unknown]
  - Hand fracture [Unknown]
  - Endometriosis [Unknown]
  - Abdominal distension [Unknown]
  - Gastrooesophageal reflux disease [Unknown]
  - Back pain [Unknown]
  - Gastric ulcer [Unknown]
  - Back pain [Unknown]
